FAERS Safety Report 7912306-X (Version None)
Quarter: 2011Q4

REPORT INFORMATION
  Report Type: 
  Country: None (occurrence: None)
  Receive Date: 20111114
  Receipt Date: 20110729
  Transmission Date: 20120403
  Serious: No
  Sender: FDA-Public Use
  Company Number: US-BAYER-2011-068360

PATIENT
  Age: 77 Year
  Sex: Male
  Weight: 54 kg

DRUGS (2)
  1. ALEVE (CAPLET) [Suspect]
     Indication: SCIATICA
     Dosage: 2 DF, BID
     Route: 048
     Dates: start: 20110701
  2. PREDNISONE [Concomitant]

REACTIONS (1)
  - HYPOAESTHESIA [None]
